FAERS Safety Report 24729134 (Version 2)
Quarter: 2025Q3

REPORT INFORMATION
  Report Type: Spontaneous
  Country: EU (occurrence: EU)
  Receive Date: 20241213
  Receipt Date: 20250809
  Transmission Date: 20251021
  Serious: Yes (Hospitalization, Other)
  Sender: ALEXION PHARMACEUTICALS
  Company Number: EU-ASTRAZENECA-202412GLO006909FR

PATIENT
  Age: 55 Year
  Sex: Female
  Weight: 76.8 kg

DRUGS (7)
  1. QUETIAPINE FUMARATE [Suspect]
     Active Substance: QUETIAPINE FUMARATE
     Indication: Mixed anxiety and depressive disorder
     Dosage: 600 MILLIGRAM, QD
     Dates: start: 20240328, end: 20241022
  2. VENLAFAXINE HYDROCHLORIDE [Suspect]
     Active Substance: VENLAFAXINE HYDROCHLORIDE
     Indication: Mixed anxiety and depressive disorder
     Dosage: 37.5 MILLIGRAM, QD
     Dates: start: 20240306
  3. VENLAFAXINE HYDROCHLORIDE [Suspect]
     Active Substance: VENLAFAXINE HYDROCHLORIDE
     Dosage: 75 MILLIGRAM, QD
     Dates: start: 20241023
  4. LOXAPINE [Suspect]
     Active Substance: LOXAPINE
     Indication: Mixed anxiety and depressive disorder
     Dosage: 100 MILLIGRAM, QD
     Dates: start: 202407, end: 20241022
  5. LOXAPINE [Suspect]
     Active Substance: LOXAPINE
     Dosage: 50 MILLIGRAM, QD
  6. ALPRAZOLAM [Concomitant]
     Active Substance: ALPRAZOLAM
     Dosage: 0.5 MILLIGRAM, QD
     Route: 065
  7. FOLIC ACID [Concomitant]
     Active Substance: FOLIC ACID
     Dosage: 5 MILLIGRAM, QD

REACTIONS (3)
  - Neuroleptic malignant syndrome [Recovering/Resolving]
  - Drug level increased [Recovering/Resolving]
  - Renal impairment [Recovered/Resolved]

NARRATIVE: CASE EVENT DATE: 20241020
